FAERS Safety Report 9814973 (Version 2)
Quarter: 2014Q1

REPORT INFORMATION
  Report Type: Report from Study
  Country: DE (occurrence: DE)
  Receive Date: 20140113
  Receipt Date: 20140203
  Transmission Date: 20141002
  Serious: Yes (Life-Threatening, Hospitalization)
  Sender: FDA-Public Use
  Company Number: DE-ROCHE-1332673

PATIENT
  Sex: Female

DRUGS (4)
  1. RANIBIZUMAB [Suspect]
     Indication: DIABETIC RETINAL OEDEMA
     Route: 050
     Dates: start: 20131127
  2. RANIBIZUMAB [Suspect]
     Indication: VISUAL IMPAIRMENT
  3. RANIBIZUMAB [Suspect]
     Indication: RETINAL CYST
  4. RANIBIZUMAB [Suspect]
     Indication: RETINAL DETACHMENT

REACTIONS (1)
  - Myocardial infarction [Recovering/Resolving]
